FAERS Safety Report 5693107-2 (Version None)
Quarter: 2008Q2

REPORT INFORMATION
  Report Type: 
  Country: None (occurrence: None)
  Receive Date: 20080402
  Receipt Date: 20080402
  Transmission Date: 20081010
  Serious: Yes (Hospitalization)
  Sender: FDA-Public Use
  Company Number: None

PATIENT
  Sex: Female
  Weight: 14.2 kg

DRUGS (2)
  1. CYCLOPHOSPHAMIDE [Suspect]
     Dosage: 600 MG
  2. THIOGUANINE [Suspect]
     Dosage: 520 MG

REACTIONS (8)
  - ABDOMINAL DISTENSION [None]
  - ABDOMINAL PAIN [None]
  - ANGIOPATHY [None]
  - ASCITES [None]
  - HEPATIC CONGESTION [None]
  - HEPATOMEGALY [None]
  - NEUTROPENIA [None]
  - PORTAL HYPERTENSION [None]
